FAERS Safety Report 23947860 (Version 1)
Quarter: 2024Q2

REPORT INFORMATION
  Report Type: Report from Study
  Country: US (occurrence: US)
  Receive Date: 20240606
  Receipt Date: 20240606
  Transmission Date: 20240716
  Serious: Yes (Hospitalization, Other)
  Sender: FDA-Public Use
  Company Number: US-ABBVIE-5738859

PATIENT
  Sex: Male
  Weight: 92 kg

DRUGS (2)
  1. RINVOQ [Suspect]
     Active Substance: UPADACITINIB
     Indication: Dermatitis atopic
     Dosage: THERAPY END DATE: JUN 2023
     Route: 048
     Dates: start: 20230601, end: 20240414
  2. RINVOQ [Suspect]
     Active Substance: UPADACITINIB
     Indication: Dermatitis atopic
     Route: 048
     Dates: start: 20230612, end: 20240414

REACTIONS (8)
  - Pneumonia [Recovering/Resolving]
  - Cough [Not Recovered/Not Resolved]
  - Pulmonary mass [Unknown]
  - Lung infiltration [Unknown]
  - Lung disorder [Recovering/Resolving]
  - Dyspnoea [Unknown]
  - Hypopnoea [Unknown]
  - Oxygen saturation decreased [Unknown]

NARRATIVE: CASE EVENT DATE: 20240101
